FAERS Safety Report 8537406-5 (Version None)
Quarter: 2012Q3

REPORT INFORMATION
  Report Type: 
  Country: None (occurrence: None)
  Receive Date: 20120725
  Receipt Date: 20120717
  Transmission Date: 20120928
  Serious: Yes (Hospitalization, Other)
  Sender: FDA-Public Use
  Company Number: US-ASTRAZENECA-2012SE28188

PATIENT
  Age: 55 Year
  Sex: Male
  Weight: 86.2 kg

DRUGS (2)
  1. SEROQUEL XR [Suspect]
     Indication: BIPOLAR I DISORDER
     Route: 048
     Dates: start: 20120416
  2. SEROQUEL XR [Suspect]
     Route: 048

REACTIONS (3)
  - SUICIDAL IDEATION [None]
  - DRUG DOSE OMISSION [None]
  - DEPRESSION [None]
